FAERS Safety Report 4695192-3 (Version None)
Quarter: 2005Q2

REPORT INFORMATION
  Report Type: 
  Country: None (occurrence: None)
  Receive Date: 20050614
  Receipt Date: 20050117
  Transmission Date: 20051028
  Serious: No
  Sender: FDA-Public Use
  Company Number: USA050188657

PATIENT
  Age: 55 Year
  Sex: Male

DRUGS (1)
  1. CIALIS [Suspect]
     Dosage: 20 MG

REACTIONS (6)
  - IRRITABILITY [None]
  - MYALGIA [None]
  - PENILE PAIN [None]
  - STOMACH DISCOMFORT [None]
  - THERAPEUTIC RESPONSE DECREASED [None]
  - WEIGHT ABNORMAL [None]
